FAERS Safety Report 8166141-0 (Version None)
Quarter: 2012Q1

REPORT INFORMATION
  Report Type: 
  Country: None (occurrence: None)
  Receive Date: 20120227
  Receipt Date: 20110425
  Transmission Date: 20120608
  Serious: No
  Sender: FDA-Public Use
  Company Number: US-MYLANLABS-2011S1006913

PATIENT
  Age: 17 Year
  Sex: Male
  Weight: 63.9 kg

DRUGS (4)
  1. AMNESTEEM [Suspect]
     Indication: ACNE
  2. CLARAVIS [Suspect]
     Indication: ACNE
  3. AMNESTEEM [Suspect]
     Indication: ACNE
     Route: 048
     Dates: start: 20100826, end: 20110331
  4. AMNESTEEM [Suspect]

REACTIONS (1)
  - MOOD ALTERED [None]
